FAERS Safety Report 9850424 (Version 1)
Quarter: 2013Q4

REPORT INFORMATION
  Report Type: Spontaneous
  Country: US (occurrence: None)
  Receive Date: 20131226
  Receipt Date: 20131226
  Transmission Date: 20140711
  Serious: Yes (Other)
  Sender: FDA-Public Use
  Company Number: PHEH2012US011744

PATIENT
  Age: 3 Year
  Sex: Male

DRUGS (1)
  1. AFINITOR (RAD) UNKNOWN [Suspect]
     Dosage: 2.5 MG, DAILY, ORAL
     Route: 048
     Dates: start: 20120502

REACTIONS (3)
  - Viral infection [None]
  - Pyrexia [None]
  - Vomiting [None]
